FAERS Safety Report 5158979-9 (Version None)
Quarter: 2006Q4

REPORT INFORMATION
  Report Type: 
  Country: None (occurrence: None)
  Receive Date: 20061117
  Receipt Date: 20061106
  Transmission Date: 20070319
  Serious: Yes (Hospitalization, Other)
  Sender: FDA-Public Use
  Company Number: HQWYE560106NOV06

PATIENT

DRUGS (1)
  1. ADVIL [Suspect]
     Indication: ACCIDENTAL EXPOSURE
     Dosage: 20-23 PILLS, ORAL
     Route: 048
     Dates: start: 20060822, end: 20060822

REACTIONS (2)
  - ACCIDENTAL DRUG INTAKE BY CHILD [None]
  - ACCIDENTAL OVERDOSE [None]
